FAERS Safety Report 8634044 (Version 2)
Quarter: 2013Q2

REPORT INFORMATION
  Report Type: Spontaneous
  Country: US (occurrence: US)
  Receive Date: 20120626
  Receipt Date: 20130618
  Transmission Date: 20140414
  Serious: Yes (Hospitalization, Disabling)
  Sender: FDA-Public Use
  Company Number: US-ASTRAZENECA-2012SE36244

PATIENT
  Age: 55 Year
  Sex: Female

DRUGS (19)
  1. NEXIUM [Suspect]
     Indication: GASTROOESOPHAGEAL REFLUX DISEASE
     Dosage: 40MG ONE OR TWO CAP DAILY
     Route: 048
     Dates: start: 20080421, end: 2012
  2. NEXIUM [Suspect]
     Indication: GASTROOESOPHAGEAL REFLUX DISEASE
     Dosage: OCCASIONALLY
     Route: 048
     Dates: start: 2012
  3. NEXIUM [Suspect]
     Indication: GASTROOESOPHAGEAL REFLUX DISEASE
     Route: 048
     Dates: start: 20080421, end: 2012
  4. PRILOSEC [Suspect]
     Indication: GASTROOESOPHAGEAL REFLUX DISEASE
     Route: 048
     Dates: start: 1997
  5. ACIPHEX [Concomitant]
     Indication: GASTROOESOPHAGEAL REFLUX DISEASE
     Dates: start: 20001117, end: 2007
  6. PEPTO BISMOL [Concomitant]
     Indication: ABDOMINAL DISCOMFORT
     Dosage: ONE TABLESPOON OCCASIONALLY
  7. EFFEXOR XR [Concomitant]
     Indication: HOT FLUSH
     Route: 048
     Dates: start: 20100111
  8. AMITRIPTYLINE [Concomitant]
     Indication: NAUSEA
     Route: 048
     Dates: start: 20110909
  9. D VITAMIN [Concomitant]
  10. CALCIUM [Concomitant]
  11. B COMPLEX [Concomitant]
  12. VITAMIN C [Concomitant]
  13. BILBERRY [Concomitant]
  14. MAGNESIUM [Concomitant]
  15. DIVIGEL [Concomitant]
     Dosage: 0.1 PERCENT TOPICAL DAILY
     Dates: start: 20110811
  16. METHYLTESTOS [Concomitant]
     Route: 048
     Dates: start: 20081201
  17. EST ESTRGN METHTEST [Concomitant]
     Dosage: 1.25/2.5MG QD
     Route: 048
     Dates: start: 20080128
  18. FLORASTOR [Concomitant]
     Route: 048
     Dates: start: 20090422
  19. DICYCLOMINE [Concomitant]
     Dosage: 10MG Q6H PRN
     Route: 048
     Dates: start: 20090422

REACTIONS (8)
  - Uterine disorder [Unknown]
  - Rotator cuff syndrome [Unknown]
  - Osteoporosis [Unknown]
  - Multiple fractures [Unknown]
  - Osteopenia [Unknown]
  - Pain [Unknown]
  - Cardiac murmur [Unknown]
  - Muscular weakness [Unknown]
